FAERS Safety Report 17604440 (Version 2)
Quarter: 2020Q2

REPORT INFORMATION
  Report Type: Spontaneous
  Country: US (occurrence: US)
  Receive Date: 20200331
  Receipt Date: 20200410
  Transmission Date: 20200713
  Serious: Yes (Death)
  Sender: FDA-Public Use
  Company Number: US-AKRON, INC.-2082133

PATIENT
  Age: 38 Year
  Sex: Male

DRUGS (1)
  1. NA [Suspect]
     Active Substance: SODIUM

REACTIONS (1)
  - Death [Fatal]
